FAERS Safety Report 6764495-0 (Version None)
Quarter: 2010Q2

REPORT INFORMATION
  Report Type: 
  Country: None (occurrence: None)
  Receive Date: 20100610
  Receipt Date: 20100531
  Transmission Date: 20101027
  Serious: Yes (Other)
  Sender: FDA-Public Use
  Company Number: DE-ABBOTT-10P-062-0648177-00

PATIENT
  Sex: Male
  Weight: 68 kg

DRUGS (7)
  1. ZEMPLAR [Suspect]
     Indication: HYPERPARATHYROIDISM SECONDARY
     Route: 042
     Dates: start: 20090324
  2. VALSARTAN [Concomitant]
     Indication: HYPERTENSION
     Dates: start: 20050921
  3. RAMIPRIL [Concomitant]
     Indication: HYPERTENSION
     Route: 048
     Dates: start: 20051222
  4. TORSEMIDE [Concomitant]
     Indication: HYPERTENSION
     Dates: start: 20051222
  5. NEBIVOLOL HCL [Concomitant]
     Indication: HYPERTENSION
     Dates: start: 20070330
  6. RENAGEL [Concomitant]
     Indication: RENAL FAILURE
     Route: 048
     Dates: start: 20070330
  7. ARANESP [Concomitant]
     Indication: ANAEMIA

REACTIONS (4)
  - CONCUSSION [None]
  - SKULL FRACTURED BASE [None]
  - SUBARACHNOID HAEMORRHAGE [None]
  - TRAUMATIC BRAIN INJURY [None]
